FAERS Safety Report 11073679 (Version 1)
Quarter: 2015Q2

REPORT INFORMATION
  Report Type: Spontaneous
  Country: TR (occurrence: TR)
  Receive Date: 20150428
  Receipt Date: 20150428
  Transmission Date: 20150821
  Serious: Yes (Other)
  Sender: FDA-Public Use
  Company Number: TR-IMPAX LABORATORIES, INC-2015-IPXL-00434

PATIENT
  Age: 42 Year
  Sex: Female

DRUGS (1)
  1. DIVALPROEX SODIUM ER [Suspect]
     Active Substance: DIVALPROEX SODIUM
     Indication: EPILEPSY
     Dosage: 1250 MG, DAILY
     Route: 065

REACTIONS (7)
  - Anaemia [Unknown]
  - C-reactive protein increased [Unknown]
  - Pleural effusion [Recovered/Resolved]
  - Leukocytosis [Unknown]
  - Red blood cell sedimentation rate increased [Unknown]
  - Pericardial effusion [Recovered/Resolved]
  - Thrombocytosis [Unknown]
